FAERS Safety Report 14004700 (Version 2)
Quarter: 2017Q3

REPORT INFORMATION
  Report Type: Spontaneous
  Country: RU (occurrence: RU)
  Receive Date: 20170922
  Receipt Date: 20170928
  Transmission Date: 20171128
  Serious: Yes (Hospitalization)
  Sender: FDA-Public Use
  Company Number: RU-ASTRAZENECA-2017SE94781

PATIENT
  Age: 66 Year
  Sex: Male
  Weight: 95 kg

DRUGS (4)
  1. BRILINTA [Suspect]
     Active Substance: TICAGRELOR
     Route: 048
     Dates: start: 201603
  2. PREDUCTAL [Concomitant]
     Active Substance: TRIMETAZIDINE DIHYDROCHLORIDE
  3. EKVATOR [Concomitant]
  4. THROMBO ASS [Concomitant]
     Active Substance: ASPIRIN

REACTIONS (3)
  - Product use issue [Unknown]
  - Angina pectoris [Recovered/Resolved]
  - Off label use [Unknown]
